FAERS Safety Report 10270865 (Version 1)
Quarter: 2014Q2

REPORT INFORMATION
  Report Type: Spontaneous
  Country: US (occurrence: None)
  Receive Date: 20140626
  Receipt Date: 20140626
  Transmission Date: 20141212
  Serious: Yes (Life-Threatening, Hospitalization)
  Sender: FDA-Public Use
  Company Number: None

PATIENT
  Age: 65 Year
  Sex: Female
  Weight: 53.2 kg

DRUGS (2)
  1. WARFARIN [Suspect]
     Indication: DEEP VEIN THROMBOSIS
     Dosage: 1 QD ORAL
     Route: 048
  2. WARFARIN [Suspect]
     Indication: HIP FRACTURE
     Dosage: 1 QD ORAL
     Route: 048

REACTIONS (7)
  - Dyspnoea [None]
  - Hyperhidrosis [None]
  - Pallor [None]
  - Ecchymosis [None]
  - International normalised ratio increased [None]
  - Haemoglobin decreased [None]
  - Melaena [None]
